FAERS Safety Report 9729318 (Version 4)
Quarter: 2016Q3

REPORT INFORMATION
  Report Type: Spontaneous
  Country: US (occurrence: US)
  Receive Date: 20131204
  Receipt Date: 20160803
  Transmission Date: 20161109
  Serious: Yes (Hospitalization, Disabling, Other)
  Sender: FDA-Public Use
  Company Number: US-MERCK-1312USA001406

PATIENT
  Sex: Male

DRUGS (4)
  1. FOSAMAX [Suspect]
     Active Substance: ALENDRONATE SODIUM
     Indication: OSTEOPOROSIS
     Dosage: 70 MG, UNKNOWN
     Route: 048
     Dates: start: 2005, end: 200802
  2. ALENDRONATE SODIUM. [Suspect]
     Active Substance: ALENDRONATE SODIUM
     Indication: OSTEOPOROSIS
     Dosage: 70 MG, QW
     Route: 048
     Dates: start: 200802, end: 201008
  3. FOSAMAX [Suspect]
     Active Substance: ALENDRONATE SODIUM
     Indication: OSTEOPOROSIS PROPHYLAXIS
     Dosage: 70 MG, UNKNOWN
     Route: 048
     Dates: start: 200806, end: 201008
  4. ALENDRONATE SODIUM. [Suspect]
     Active Substance: ALENDRONATE SODIUM
     Indication: OSTEOPOROSIS PROPHYLAXIS

REACTIONS (26)
  - Fall [Unknown]
  - Pulmonary congestion [Unknown]
  - Bursitis [Unknown]
  - Low turnover osteopathy [Not Recovered/Not Resolved]
  - Hyperkeratosis [Unknown]
  - Femur fracture [Unknown]
  - Dental caries [Unknown]
  - Limb injury [Unknown]
  - Atonic urinary bladder [Not Recovered/Not Resolved]
  - Urinary tract obstruction [Unknown]
  - Calculus bladder [Unknown]
  - Spinal osteoarthritis [Unknown]
  - Hyperlipidaemia [Unknown]
  - Muscle strain [Unknown]
  - Ischaemic cardiomyopathy [Unknown]
  - Cellulitis [Unknown]
  - Pain in extremity [Unknown]
  - Fall [Unknown]
  - Skin abrasion [Unknown]
  - Anaemia postoperative [Unknown]
  - Benign prostatic hyperplasia [Unknown]
  - Head injury [Unknown]
  - Inguinal hernia [Unknown]
  - Peripheral arthritis [Unknown]
  - Hip fracture [Unknown]
  - Osteoporosis [Not Recovered/Not Resolved]

NARRATIVE: CASE EVENT DATE: 20060606
